FAERS Safety Report 18294478 (Version 2)
Quarter: 2022Q1

REPORT INFORMATION
  Report Type: Report from Study
  Country: FR (occurrence: None)
  Receive Date: 20200922
  Receipt Date: 20220203
  Transmission Date: 20220423
  Serious: Yes (Death)
  Sender: FDA-Public Use
  Company Number: FR-ROCHE-2680729

PATIENT
  Age: 64 Year
  Sex: Male
  Weight: 79 kg

DRUGS (3)
  1. VISMODEGIB [Suspect]
     Active Substance: VISMODEGIB
     Indication: Chondrosarcoma
     Route: 048
     Dates: start: 20111017
  2. VISMODEGIB [Suspect]
     Active Substance: VISMODEGIB
     Route: 048
     Dates: start: 20111115
  3. DOXORUBICIN [Concomitant]
     Active Substance: DOXORUBICIN
     Dates: start: 20111214

REACTIONS (5)
  - Sepsis [Fatal]
  - Hyperkalaemia [Fatal]
  - Dysgeusia [Fatal]
  - Disease progression [Fatal]
  - Diarrhoea [Fatal]

NARRATIVE: CASE EVENT DATE: 20120102
